FAERS Safety Report 5638619-2 (Version None)
Quarter: 2008Q1

REPORT INFORMATION
  Report Type: 
  Country: None (occurrence: None)
  Receive Date: 20080226
  Receipt Date: 20070820
  Transmission Date: 20080703
  Serious: No
  Sender: FDA-Public Use
  Company Number: A0664344A

PATIENT
  Age: 64 Year
  Sex: Female
  Weight: 89.5 kg

DRUGS (6)
  1. IMITREX [Suspect]
     Indication: MIGRAINE
     Route: 048
     Dates: start: 20040101
  2. ZETIA [Concomitant]
     Indication: BLOOD CHOLESTEROL INCREASED
     Route: 048
  3. ACTONEL [Concomitant]
     Indication: OSTEOPOROSIS
     Route: 048
  4. CALCIUM [Concomitant]
     Indication: OSTEOPOROSIS
     Route: 048
  5. TRAZODONE HCL [Concomitant]
     Indication: SLEEP DISORDER
     Route: 048
  6. VICODIN [Concomitant]
     Indication: PAIN
     Route: 048

REACTIONS (4)
  - MALABSORPTION [None]
  - MIGRAINE [None]
  - THERAPEUTIC RESPONSE DECREASED [None]
  - WRONG TECHNIQUE IN DRUG USAGE PROCESS [None]
